FAERS Safety Report 10585485 (Version 3)
Quarter: 2014Q4

REPORT INFORMATION
  Report Type: Spontaneous
  Country: JP (occurrence: JP)
  Receive Date: 20141114
  Receipt Date: 20141205
  Transmission Date: 20150529
  Serious: Yes (Other)
  Sender: FDA-Public Use
  Company Number: JP-ASTELLAS-2014JP024496AA

PATIENT
  Age: 86 Year
  Sex: Male
  Weight: 49 kg

DRUGS (3)
  1. RINDERON                           /00008501/ [Concomitant]
     Indication: PROSTATE CANCER
     Dosage: 1.0 MG, ONCE DAILY
     Route: 048
     Dates: start: 20110407
  2. XTANDI [Suspect]
     Active Substance: ENZALUTAMIDE
     Indication: PROSTATE CANCER
     Route: 048
     Dates: start: 20141001, end: 20141009
  3. XTANDI [Suspect]
     Active Substance: ENZALUTAMIDE
     Route: 048
     Dates: start: 20141010, end: 20141011

REACTIONS (1)
  - Decreased appetite [Recovered/Resolved]

NARRATIVE: CASE EVENT DATE: 20141001
